FAERS Safety Report 4440551-7 (Version None)
Quarter: 2004Q3

REPORT INFORMATION
  Report Type: 
  Country: None (occurrence: None)
  Receive Date: 20040831
  Receipt Date: 20040818
  Transmission Date: 20050211
  Serious: Yes (Other)
  Sender: FDA-Public Use
  Company Number: 200410516BCA

PATIENT
  Age: 34 Year
  Sex: Female

DRUGS (40)
  1. PLASBUMIN-5 [Suspect]
     Dosage: ONCE, INTRAVENOUS
     Route: 042
     Dates: start: 19890103
  2. PLASBUMIN-5 [Suspect]
     Dosage: ONCE, INTRAVENOUS
     Route: 042
     Dates: start: 19890106
  3. ALBUMIN (HUMAN) [Suspect]
     Dosage: 2 U, INTRAVENOUS
     Route: 042
     Dates: start: 19890601
  4. RED BLOOD CELLS [Suspect]
     Dosage: ONCE, INTRAVENOUS
     Route: 042
     Dates: start: 19890102
  5. PLATELETS [Suspect]
     Dosage: ONCE, INTRAVENOUS
     Route: 042
     Dates: start: 19890102
  6. FFP (A+) (PLASMA PROTEIN FRACTION) (HUMAN)) [Suspect]
     Dosage: ONCE, INTRAVENOUS
     Route: 042
     Dates: start: 19890102
  7. FFP (A+) (PLASMA PROTEIN FRACTION) (HUMAN)) [Suspect]
  8. FFP (A+) (PLASMA PROTEIN FRACTION) (HUMAN)) [Suspect]
  9. FFP (A+) (PLASMA PROTEIN FRACTION) (HUMAN)) [Suspect]
  10. FFP (A+) (PLASMA PROTEIN FRACTION) (HUMAN)) [Suspect]
  11. FFP (A+) (PLASMA PROTEIN FRACTION) (HUMAN)) [Suspect]
  12. RED BLOOD CELLS [Suspect]
     Dosage: INTRAVENOUS
     Route: 042
     Dates: start: 19890102
  13. RED BLOOD CELLS [Suspect]
  14. RED BLOOD CELLS [Suspect]
  15. RED BLOOD CELLS [Suspect]
  16. RED BLOOD CELLS [Suspect]
  17. RED BLOOD CELLS [Suspect]
  18. RED BLOOD CELLS [Suspect]
  19. RED BLOOD CELLS [Suspect]
  20. RED BLOOD CELLS [Suspect]
  21. RED BLOOD CELLS [Suspect]
  22. RED BLOOD CELLS [Suspect]
  23. RED BLOOD CELLS [Suspect]
  24. RED BLOOD CELLS [Suspect]
  25. RED BLOOD CELLS [Suspect]
  26. RED BLOOD CELLS [Suspect]
  27. RED BLOOD CELLS [Suspect]
  28. RED BLOOD CELLS [Suspect]
  29. RED BLOOD CELLS [Suspect]
     Dosage: ONCE, INTRAVENOUS
     Route: 042
     Dates: start: 19890103
  30. RED BLOOD CELLS [Suspect]
     Dates: start: 19890104
  31. RED BLOOD CELLS [Suspect]
     Dates: start: 19890104
  32. RED BLOOD CELLS [Suspect]
     Dates: start: 19890104
  33. RED BLOOD CELLS [Suspect]
     Dates: start: 19890106
  34. RED BLOOD CELLS [Suspect]
     Dates: start: 19890106
  35. STP (AB+) (DRIED HUMAN PLASMA) [Suspect]
     Dosage: ONCE, INTRAVENOUS
     Route: 042
     Dates: start: 19890102
  36. STP (AB+) (DRIED HUMAN PLASMA) [Suspect]
  37. STP (AB+) (DRIED HUMAN PLASMA) [Suspect]
  38. STP (AB+) (DRIED HUMAN PLASMA) [Suspect]
  39. STP (AB-) (DRIED HUMAN PLASMA) [Suspect]
     Dates: start: 19890102
  40. STP (A+) (DRIED HUMAN PLASMA) [Suspect]
     Dosage: ONCE, INTRAVENOUS
     Route: 042
     Dates: start: 19890102

REACTIONS (1)
  - HEPATITIS C POSITIVE [None]
